FAERS Safety Report 10877624 (Version 1)
Quarter: 2015Q1

REPORT INFORMATION
  Report Type: Spontaneous
  Country: US (occurrence: None)
  Receive Date: 20150224
  Receipt Date: 20150224
  Transmission Date: 20150721
  Serious: No
  Sender: FDA-Public Use
  Company Number: 2015-00024

PATIENT
  Age: 68 Year
  Sex: Male
  Weight: 90.72 kg

DRUGS (6)
  1. ZICAM COLD REMEDY RAPIDMELTS [Suspect]
     Active Substance: ZINC ACETATE ANHYDROUS\ZINC GLUCONATE
     Indication: NASOPHARYNGITIS
     Dosage: 1 RAPIDMELT ORALLY EVERY 3 HRS
     Route: 048
     Dates: start: 20150208, end: 20150213
  2. SIMVASTATIN. [Concomitant]
     Active Substance: SIMVASTATIN
  3. ALLOPURINOL. [Concomitant]
     Active Substance: ALLOPURINOL
  4. BYSTOLIC [Suspect]
     Active Substance: NEBIVOLOL HYDROCHLORIDE
  5. ZICAM COLD REMEDY RAPIDMELTS [Suspect]
     Active Substance: ZINC ACETATE ANHYDROUS\ZINC GLUCONATE
     Indication: NASOPHARYNGITIS
     Dosage: 1 RAPIDMELT ORALLY EVERY 3 HRS
     Route: 048
     Dates: start: 20150208, end: 20150213
  6. MICARDIS [Concomitant]
     Active Substance: TELMISARTAN

REACTIONS (6)
  - Oral pain [None]
  - Lip dry [None]
  - Hypoaesthesia oral [None]
  - Ageusia [None]
  - Lip swelling [None]
  - Glossodynia [None]

NARRATIVE: CASE EVENT DATE: 20150211
